FAERS Safety Report 6798967 (Version 13)
Quarter: 2014Q1

REPORT INFORMATION
  Report Type: Spontaneous
  Country: US (occurrence: US)
  Receive Date: 20081029
  Receipt Date: 20140127
  Transmission Date: 20141002
  Serious: Yes (Hospitalization, Other)
  Sender: FDA-Public Use
  Company Number: PHEH2008US09364

PATIENT
  Age: 56 Year
  Sex: Female
  Weight: 80.73 kg

DRUGS (26)
  1. ZOMETA [Suspect]
     Route: 042
     Dates: start: 2002
  2. FEMARA [Concomitant]
     Route: 048
     Dates: start: 200209
  3. PROTONIX ^PHARMACIA^ [Concomitant]
  4. METOPROLOL [Concomitant]
  5. EFFEXOR [Concomitant]
  6. LISINOPRIL [Concomitant]
  7. OXYCONTIN [Concomitant]
  8. HYDROCODONE [Concomitant]
  9. NEURONTIN [Concomitant]
  10. ASPIRIN ^BAYER^ [Concomitant]
  11. COMPAZINE [Concomitant]
  12. FLUOXETINE [Concomitant]
  13. HYDROCODONE W/ACETAMINOPHEN [Concomitant]
  14. IMODIUM A-D [Concomitant]
  15. LOMOTIL [Concomitant]
  16. OMEPRAZOLE [Concomitant]
  17. MORPHINE [Concomitant]
  18. PROCHLORPERAZINE [Concomitant]
  19. CAPECITABINE [Concomitant]
  20. DICYCLOMINE [Concomitant]
  21. DIMENHYDRINATE [Concomitant]
  22. ZANTAC [Concomitant]
  23. AMOXICILLIN [Concomitant]
  24. ADRIAMYCIN [Concomitant]
  25. CYTOXAN [Concomitant]
  26. DEXAMETHASONE [Concomitant]

REACTIONS (85)
  - Pseudomembranous colitis [Recovering/Resolving]
  - Depression [Unknown]
  - Osteonecrosis of jaw [Unknown]
  - Pain [Unknown]
  - Infection [Unknown]
  - Scar [Unknown]
  - Injury [Unknown]
  - Emotional distress [Unknown]
  - Anxiety [Unknown]
  - Physical disability [Unknown]
  - Bone disorder [Unknown]
  - Bone swelling [Unknown]
  - Hypoaesthesia [Unknown]
  - Spinal osteoarthritis [Unknown]
  - Back pain [Unknown]
  - Nausea [Unknown]
  - Vomiting [Unknown]
  - Diarrhoea [Unknown]
  - Abdominal pain [Unknown]
  - Hyponatraemia [Unknown]
  - Hypokalaemia [Unknown]
  - Metastases to liver [Unknown]
  - Swelling face [Unknown]
  - Pulmonary oedema [Unknown]
  - Staphylococcal infection [Unknown]
  - Mucosal inflammation [Unknown]
  - Weight decreased [Unknown]
  - Cardiac failure congestive [Unknown]
  - Metastases to bone [Unknown]
  - Sepsis [Unknown]
  - Metastases to spine [Unknown]
  - Neuropathy peripheral [Unknown]
  - Anaemia [Unknown]
  - Cataract [Unknown]
  - Bone lesion [Unknown]
  - Renal cyst [Unknown]
  - Compression fracture [Unknown]
  - Arteriosclerosis coronary artery [Unknown]
  - Cardiomegaly [Unknown]
  - Ischaemic cardiomyopathy [Unknown]
  - Acute respiratory failure [Unknown]
  - Hypoxia [Unknown]
  - Left atrial dilatation [Unknown]
  - Dyspnoea [Unknown]
  - Memory impairment [Unknown]
  - Dyspepsia [Unknown]
  - Fatigue [Unknown]
  - Blood count abnormal [Unknown]
  - Blood glucose increased [Unknown]
  - Phlebitis [Unknown]
  - Abnormal behaviour [Unknown]
  - Chemodectoma [Unknown]
  - Hip fracture [Unknown]
  - Spinal column stenosis [Unknown]
  - Intervertebral disc protrusion [Unknown]
  - Hallucination [Unknown]
  - Pulmonary hypertension [Unknown]
  - Pleural effusion [Unknown]
  - Urinary tract infection [Unknown]
  - Hyperglycaemia [Unknown]
  - Bradycardia [Unknown]
  - Breast cancer metastatic [Unknown]
  - Respiratory distress [Unknown]
  - Chest pain [Unknown]
  - Myocardial infarction [Unknown]
  - Dehydration [Unknown]
  - Fall [Unknown]
  - Joint injury [Unknown]
  - Femur fracture [Unknown]
  - Osteoporosis [Unknown]
  - Asthenia [Unknown]
  - Chest discomfort [Unknown]
  - Musculoskeletal discomfort [Unknown]
  - Hot flush [Unknown]
  - Paraesthesia [Unknown]
  - Atelectasis [Unknown]
  - Aortic arteriosclerosis [Unknown]
  - Aortic calcification [Unknown]
  - Gait disturbance [Unknown]
  - Restlessness [Unknown]
  - Hepatic mass [Unknown]
  - Hepatic lesion [Unknown]
  - Renal disorder [Unknown]
  - Osteopenia [Unknown]
  - Osteosclerosis [Unknown]
